FAERS Safety Report 8780522 (Version 1)
Quarter: 2012Q4

REPORT INFORMATION
  Report Type: Spontaneous
  Country: US (occurrence: None)
  Receive Date: 20120829
  Receipt Date: 20120829
  Transmission Date: 20130627
  Serious: Yes (Disabling)
  Sender: FDA-Public Use
  Company Number: AUR-APL-2012-03631

PATIENT
  Sex: Male

DRUGS (4)
  1. SIMVASTATIN (SIMVASTATIN) [Suspect]
     Route: 048
     Dates: start: 20120709, end: 20120806
  2. BISOPROLOL [Concomitant]
  3. CLOPIDOGREL (CLOPIDOGREL) [Concomitant]
  4. ISOSORBIDE MONONITRATE (ISOSORBIDE MONONITRATE) [Concomitant]

REACTIONS (1)
  - Amnesia [None]
